FAERS Safety Report 11500979 (Version 1)
Quarter: 2015Q3

REPORT INFORMATION
  Report Type: Spontaneous
  Country: US (occurrence: US)
  Receive Date: 20150903
  Receipt Date: 20150903
  Transmission Date: 20151125
  Serious: No
  Sender: FDA-Public Use
  Company Number: US-ELI_LILLY_AND_COMPANY-US200901002315

PATIENT
  Age: 73 Year
  Sex: Male

DRUGS (2)
  1. HUMALOG [Suspect]
     Active Substance: INSULIN LISPRO
     Dosage: 6 U, EACH MORNING
     Dates: start: 20081113
  2. ACTOS [Concomitant]
     Active Substance: PIOGLITAZONE HYDROCHLORIDE

REACTIONS (7)
  - Blood glucose decreased [Recovered/Resolved]
  - Tooth extraction [Recovered/Resolved]
  - Post procedural haemorrhage [Unknown]
  - Asthenia [Unknown]
  - Asthenia [Recovered/Resolved]
  - Asthenia [Recovered/Resolved]
  - Mastication disorder [Unknown]

NARRATIVE: CASE EVENT DATE: 200812
